FAERS Safety Report 7213045-3 (Version None)
Quarter: 2011Q1

REPORT INFORMATION
  Report Type: 
  Country: None (occurrence: None)
  Receive Date: 20110106
  Receipt Date: 20101228
  Transmission Date: 20110831
  Serious: Yes (Hospitalization)
  Sender: FDA-Public Use
  Company Number: B0691123A

PATIENT
  Sex: Female

DRUGS (12)
  1. PROSTIGMIN BROMIDE [Concomitant]
     Indication: REVERSAL OF SEDATION
     Route: 065
  2. DROPERIDOL [Concomitant]
     Indication: ANAESTHESIA PROCEDURE
     Dosage: 1.25MG PER DAY
     Route: 065
  3. KETAMINE [Concomitant]
     Indication: ANAESTHESIA PROCEDURE
     Dosage: 30MG PER DAY
     Route: 065
  4. PROFENID [Concomitant]
     Indication: PROCEDURAL PAIN
     Route: 065
  5. XYLOCAINE [Concomitant]
     Indication: ANAESTHESIA PROCEDURE
     Dosage: 50MG PER DAY
     Route: 065
  6. DIPRIVAN [Concomitant]
     Indication: ANAESTHESIA PROCEDURE
     Dosage: 130MG PER DAY
     Route: 065
  7. ACUPAN [Concomitant]
     Indication: PROCEDURAL PAIN
     Route: 065
  8. SUFENTA PRESERVATIVE FREE [Concomitant]
     Indication: ANAESTHESIA PROCEDURE
     Dosage: 15UG PER DAY
     Route: 065
  9. ZOPHREN [Suspect]
     Indication: PROCEDURAL VOMITING
     Dosage: 4MG PER DAY
     Route: 042
     Dates: start: 20101015, end: 20101015
  10. XANAX [Concomitant]
     Indication: PRODUCT USED FOR UNKNOWN INDICATION
     Dosage: .5MG PER DAY
     Route: 048
     Dates: start: 20101012, end: 20101012
  11. PERFALGAN [Concomitant]
     Indication: PROCEDURAL PAIN
     Route: 065
  12. ATROPINE [Concomitant]
     Indication: REVERSAL OF SEDATION
     Route: 065

REACTIONS (3)
  - DRUG INEFFECTIVE [None]
  - VOMITING [None]
  - NAUSEA [None]
